FAERS Safety Report 6706743-9 (Version None)
Quarter: 2010Q2

REPORT INFORMATION
  Report Type: 
  Country: None (occurrence: None)
  Receive Date: 20100503
  Receipt Date: 20100420
  Transmission Date: 20101027
  Serious: Yes (Other)
  Sender: FDA-Public Use
  Company Number: US-PFIZER INC-2010027606

PATIENT
  Sex: Female
  Weight: 72 kg

DRUGS (10)
  1. CHANTIX [Suspect]
     Indication: SMOKING CESSATION THERAPY
     Dosage: 0.5 MG, 1X/DAY
     Route: 048
     Dates: start: 20070101
  2. PRISTIQ [Concomitant]
     Indication: DEPRESSION
     Dosage: UNK
  3. SULINDAC [Concomitant]
  4. COMPAZINE [Concomitant]
  5. REMERON [Concomitant]
  6. SUBOXONE [Concomitant]
  7. ESTRACE [Concomitant]
  8. ATIVAN [Concomitant]
  9. IBANDRONATE SODIUM [Concomitant]
  10. DETROL LA [Concomitant]

REACTIONS (2)
  - RESPIRATORY ARREST [None]
  - SKIN DISCOLOURATION [None]
